FAERS Safety Report 15998799 (Version 5)
Quarter: 2020Q4

REPORT INFORMATION
  Report Type: Spontaneous
  Country: ZA (occurrence: ZA)
  Receive Date: 20190223
  Receipt Date: 20201130
  Transmission Date: 20210113
  Serious: Yes (Hospitalization, Other)
  Sender: FDA-Public Use
  Company Number: ZA-AMGEN-ZAFSP2019028779

PATIENT
  Age: 53 Year
  Sex: Female
  Weight: 73 kg

DRUGS (7)
  1. MTX [METHOTREXATE SODIUM] [Suspect]
     Active Substance: METHOTREXATE SODIUM
     Indication: RHEUMATOID ARTHRITIS
     Dosage: 25 MG, UNK
     Route: 065
     Dates: start: 20100501
  2. MTX [METHOTREXATE SODIUM] [Suspect]
     Active Substance: METHOTREXATE SODIUM
     Dosage: 25 MILLIGRAM
     Route: 065
     Dates: start: 2016
  3. ENBREL [Suspect]
     Active Substance: ETANERCEPT
     Indication: RHEUMATOID ARTHRITIS
     Dosage: 25 MILLIGRAM, QWK
     Route: 058
     Dates: start: 20101101
  4. PLASMOQUINE [Suspect]
     Active Substance: CHLOROQUINE SULFATE
     Indication: PRODUCT USED FOR UNKNOWN INDICATION
     Dosage: UNK
     Route: 065
  5. HYDROXYCHLOROQUINE [Concomitant]
     Active Substance: HYDROXYCHLOROQUINE
     Dosage: 200 MG, DAILY
     Dates: start: 20100501
  6. ENBREL [Suspect]
     Active Substance: ETANERCEPT
     Dosage: UNK
     Route: 065
     Dates: start: 201412
  7. ENBREL [Suspect]
     Active Substance: ETANERCEPT
     Dosage: 25 MG, 2X/WEEK
     Route: 058
     Dates: start: 20120401

REACTIONS (8)
  - Dural tear [Recovered/Resolved]
  - Oesophagitis [Unknown]
  - Sinusitis [Not Recovered/Not Resolved]
  - Dysphagia [Unknown]
  - Off label use [Unknown]
  - Back pain [Unknown]
  - Post procedural complication [Unknown]
  - Blood creatinine increased [Unknown]

NARRATIVE: CASE EVENT DATE: 20101101
